FAERS Safety Report 22338699 (Version 1)
Quarter: 2023Q2

REPORT INFORMATION
  Report Type: Spontaneous
  Country: GB (occurrence: GB)
  Receive Date: 20230518
  Receipt Date: 20230518
  Transmission Date: 20230721
  Serious: Yes (Other)
  Sender: FDA-Public Use
  Company Number: GB-SUN PHARMACEUTICAL INDUSTRIES LTD-2023RR-388330

PATIENT
  Age: 32 Year
  Sex: Female

DRUGS (2)
  1. FINGOLIMOD [Suspect]
     Active Substance: FINGOLIMOD
     Indication: Multiple sclerosis
     Dosage: UNK
     Route: 065
     Dates: end: 201505
  2. NALTREXONE [Suspect]
     Active Substance: NALTREXONE
     Indication: Prophylaxis
     Dosage: LOW DOSE
     Route: 065

REACTIONS (3)
  - Disease recurrence [Recovered/Resolved]
  - Lymphopenia [Recovered/Resolved]
  - Drug ineffective [Unknown]
